FAERS Safety Report 8189335 (Version 2)
Quarter: 2013Q1

REPORT INFORMATION
  Report Type: Spontaneous
  Country: US (occurrence: US)
  Receive Date: 20111019
  Receipt Date: 20121218
  Transmission Date: 20140127
  Serious: Yes (Other)
  Sender: FDA-Public Use
  Company Number: PHEH2011US04700

PATIENT
  Age: 61 Year
  Sex: Male

DRUGS (3)
  1. ZOMETA (ZOLEDRONATE) [Suspect]
     Indication: PROSTATE CANCER
     Dosage: 3.5 MG, QMO
  2. ZOMETA [Suspect]
     Dosage: 3.5 MG, QMO
  3. TAXOL [Suspect]
     Indication: PROSTATE CANCER

REACTIONS (1)
  - Osteonecrosis of jaw [Recovered/Resolved]
